FAERS Safety Report 7136522-2 (Version None)
Quarter: 2010Q4

REPORT INFORMATION
  Report Type: 
  Country: None (occurrence: None)
  Receive Date: 20101206
  Receipt Date: 20090822
  Transmission Date: 20110411
  Serious: Yes (Death, Hospitalization)
  Sender: FDA-Public Use
  Company Number: CH-ACTELION-A-CH2009-27078

PATIENT
  Age: 39 Year
  Sex: Male

DRUGS (1)
  1. TRACLEER [Suspect]
     Indication: PULMONARY ARTERIAL HYPERTENSION
     Dosage: 125 MG, BID
     Route: 048
     Dates: end: 20090812

REACTIONS (6)
  - CYANOSIS [None]
  - DEATH [None]
  - DYSPNOEA [None]
  - MEMORY IMPAIRMENT [None]
  - RESUSCITATION [None]
  - SYNCOPE [None]
